FAERS Safety Report 5123840-2 (Version None)
Quarter: 2006Q4

REPORT INFORMATION
  Report Type: 
  Country: None (occurrence: None)
  Receive Date: 20061010
  Receipt Date: 20050209
  Transmission Date: 20070319
  Serious: Yes (Other)
  Sender: FDA-Public Use
  Company Number: SE-GLAXOSMITHKLINE-B0371992A

PATIENT
  Sex: Female

DRUGS (7)
  1. SEROXAT [Suspect]
  2. SEROSCAND [Suspect]
  3. ZYPREXA [Suspect]
  4. IMOVANE [Concomitant]
  5. SONATA [Concomitant]
  6. STESOLID [Concomitant]
  7. ATARAX [Concomitant]

REACTIONS (6)
  - EATING DISORDER [None]
  - INTENTIONAL SELF-INJURY [None]
  - SENSATION OF BLOOD FLOW [None]
  - SLEEP DISORDER [None]
  - STRESS [None]
  - TENSION [None]
